FAERS Safety Report 8237296-4 (Version None)
Quarter: 2012Q1

REPORT INFORMATION
  Report Type: 
  Country: None (occurrence: None)
  Receive Date: 20120327
  Receipt Date: 20120320
  Transmission Date: 20120608
  Serious: Yes (Other)
  Sender: FDA-Public Use
  Company Number: RU-BRISTOL-MYERS SQUIBB COMPANY-16370603

PATIENT
  Age: 40 Year
  Sex: Female

DRUGS (2)
  1. OMEPRAZOLE [Concomitant]
     Indication: GASTRITIS
  2. ENTECAVIR [Suspect]
     Indication: HEPATITIS B
     Route: 048
     Dates: start: 20110801

REACTIONS (2)
  - PAIN IN EXTREMITY [None]
  - CHRONIC TONSILLITIS [None]
